FAERS Safety Report 14118439 (Version 2)
Quarter: 2017Q4

REPORT INFORMATION
  Report Type: Spontaneous
  Country: FR (occurrence: FR)
  Receive Date: 20171024
  Receipt Date: 20171230
  Transmission Date: 20180321
  Serious: Yes (Other)
  Sender: FDA-Public Use
  Company Number: FR-MERCK KGAA-2031235

PATIENT
  Age: 40 Year
  Sex: Female
  Weight: 53 kg

DRUGS (2)
  1. NOVOTHYROX [Suspect]
     Active Substance: LEVOTHYROXINE SODIUM
     Indication: THYROIDECTOMY
     Route: 048
     Dates: start: 201705
  2. LEVOTHYROXINE SODIUM. [Suspect]
     Active Substance: LEVOTHYROXINE SODIUM

REACTIONS (9)
  - Weight decreased [Unknown]
  - Sleep disorder [Unknown]
  - Disturbance in attention [Unknown]
  - Dizziness [Unknown]
  - Migraine [Unknown]
  - Fatigue [Unknown]
  - Anxiety [Unknown]
  - Vertigo [Unknown]
  - Depression [Unknown]

NARRATIVE: CASE EVENT DATE: 201709
